FAERS Safety Report 7659173-X (Version None)
Quarter: 2011Q3

REPORT INFORMATION
  Report Type: 
  Country: None (occurrence: None)
  Receive Date: 20110805
  Receipt Date: 20110727
  Transmission Date: 20111222
  Serious: Yes (Death, Hospitalization)
  Sender: FDA-Public Use
  Company Number: DE-GLAXOSMITHKLINE-B0737144A

PATIENT
  Sex: Male

DRUGS (11)
  1. STUDY MEDICATION [Suspect]
     Indication: CHRONIC LYMPHOCYTIC LEUKAEMIA
     Dosage: 1000MG CYCLIC
     Route: 042
     Dates: start: 20101125, end: 20101211
  2. PANTOPRAZOLE [Concomitant]
     Dates: start: 20101026, end: 20101204
  3. LEUCOVORIN CALCIUM [Concomitant]
     Dates: start: 20101125, end: 20101203
  4. CHLORAMBUCIL [Suspect]
     Indication: CHRONIC LYMPHOCYTIC LEUKAEMIA
     Dosage: 32MG EVERY TWO WEEKS
     Route: 048
     Dates: start: 20101125, end: 20101211
  5. ARCOXIA [Concomitant]
     Dates: start: 20101029, end: 20101101
  6. NOVAMINSULFON [Concomitant]
     Dates: start: 20101026, end: 20101204
  7. FLUPIRTINE MALEATE [Concomitant]
     Dates: start: 20101026, end: 20101205
  8. ENOXAPARIN [Concomitant]
     Dates: start: 20101021, end: 20101204
  9. COTRIM DS [Concomitant]
     Dates: start: 20101125, end: 20101202
  10. TORSEMIDE [Concomitant]
     Dates: start: 20101101, end: 20101204
  11. ALLOPURINOL [Concomitant]
     Dates: start: 20101125, end: 20101203

REACTIONS (1)
  - HAEMORRHAGIC STROKE [None]
